FAERS Safety Report 4832514-4 (Version None)
Quarter: 2005Q4

REPORT INFORMATION
  Report Type: 
  Country: None (occurrence: None)
  Receive Date: 20051121
  Receipt Date: 20051111
  Transmission Date: 20060501
  Serious: Yes (Other)
  Sender: FDA-Public Use
  Company Number: JP-JNJFOC-20051102282

PATIENT
  Sex: Male

DRUGS (8)
  1. ITRIZOLE [Suspect]
     Indication: NAIL TINEA
     Route: 048
     Dates: start: 20040120, end: 20040525
  2. SIMVASTATIN [Concomitant]
     Route: 048
     Dates: start: 20040522
  3. ENALAPRIL MALEATE [Concomitant]
     Indication: MYOCARDIAL INFARCTION
     Route: 048
     Dates: start: 20040522
  4. ISOSORBIDE MONONITRATE [Concomitant]
     Indication: ANGINA PECTORIS
     Route: 048
     Dates: start: 20040522
  5. ASPIRIN [Concomitant]
     Indication: MYOCARDIAL INFARCTION
     Route: 048
     Dates: start: 20040522
  6. FAMOTIDINE [Concomitant]
     Indication: GASTRITIS
     Route: 048
     Dates: start: 20040522
  7. TICLOPIDINE HYDROCHLORIDE [Concomitant]
     Indication: MYOCARDIAL INFARCTION
     Route: 048
     Dates: start: 20040522
  8. TOCOPHEROL CONCENTRATE CAP [Concomitant]
     Indication: ANGINA PECTORIS
     Route: 048
     Dates: start: 20040522

REACTIONS (1)
  - ELECTROCARDIOGRAM QT PROLONGED [None]
